FAERS Safety Report 9735478 (Version 1)
Quarter: 2013Q4

REPORT INFORMATION
  Report Type: Spontaneous
  Country: US (occurrence: US)
  Receive Date: 20131206
  Receipt Date: 20131206
  Transmission Date: 20140711
  Serious: No
  Sender: FDA-Public Use
  Company Number: US-GILEAD-2009-0023321

PATIENT
  Sex: Male
  Weight: 81.65 kg

DRUGS (11)
  1. LETAIRIS [Suspect]
     Indication: PULMONARY ARTERIAL HYPERTENSION
     Route: 048
     Dates: start: 20080916
  2. GLYBURIDE [Concomitant]
     Indication: DIABETES MELLITUS
  3. ACTOS [Concomitant]
  4. PROPANOLOL [Concomitant]
  5. SYMBICORT [Concomitant]
     Indication: DIABETES MELLITUS
  6. PROTONIX [Concomitant]
  7. ALDACTONE [Concomitant]
  8. REVATIO [Concomitant]
  9. OCUVITE [Concomitant]
  10. AMBIEN [Concomitant]
  11. NYSTATIN [Concomitant]

REACTIONS (1)
  - Pancreatic disorder [Unknown]
